FAERS Safety Report 9782470 (Version 1)
Quarter: 2013Q4

REPORT INFORMATION
  Report Type: Spontaneous
  Country: US (occurrence: US)
  Receive Date: 20131226
  Receipt Date: 20131226
  Transmission Date: 20140711
  Serious: No
  Sender: FDA-Public Use
  Company Number: US-JNJFOC-20131209612

PATIENT
  Sex: Female
  Weight: 122.47 kg

DRUGS (7)
  1. DURAGESIC [Suspect]
     Indication: BACK PAIN
     Route: 062
     Dates: start: 2013
  2. DURAGESIC [Suspect]
     Indication: BACK PAIN
     Route: 062
     Dates: start: 2013, end: 2013
  3. DURAGESIC [Suspect]
     Indication: BACK PAIN
     Route: 062
     Dates: start: 2013, end: 2013
  4. BACLOFEN [Concomitant]
     Indication: MUSCLE SPASMS
     Route: 048
     Dates: start: 2012
  5. CYPROHEPTADINE [Concomitant]
     Indication: MIGRAINE
     Route: 048
     Dates: start: 2012
  6. LAMOTRIGINE [Concomitant]
     Indication: MIGRAINE
     Route: 048
     Dates: start: 201110
  7. DILAUDID [Concomitant]
     Indication: BACK PAIN
     Dosage: 3 TIMES A DAY AS NEEDED
     Route: 048
     Dates: start: 2013

REACTIONS (6)
  - Wrong technique in drug usage process [Unknown]
  - Product quality issue [Unknown]
  - Drug ineffective [Unknown]
  - Drug dose omission [Unknown]
  - Wrong technique in drug usage process [Unknown]
  - Product quality issue [Unknown]
